FAERS Safety Report 18594563 (Version 1)
Quarter: 2020Q4

REPORT INFORMATION
  Report Type: Spontaneous
  Country: US (occurrence: US)
  Receive Date: 20201208
  Receipt Date: 20201208
  Transmission Date: 20210114
  Serious: No
  Sender: FDA-Public Use
  Company Number: None

PATIENT
  Age: 58 Year
  Sex: Male

DRUGS (6)
  1. AMLODIPINE [Concomitant]
     Active Substance: AMLODIPINE BESYLATE
  2. BUPROPIN [Concomitant]
     Active Substance: BUPROPION
  3. LEVOTHYROXIN [Concomitant]
     Active Substance: LEVOTHYROXINE
  4. INLYTA [Suspect]
     Active Substance: AXITINIB
     Indication: RENAL CANCER
     Dosage: ?          OTHER FREQUENCY:EVERY 12 HOURS;?
     Route: 048
     Dates: start: 20201101
  5. GLIMEPIRIDE. [Concomitant]
     Active Substance: GLIMEPIRIDE
  6. IRESARTAN [Concomitant]

REACTIONS (7)
  - Throat irritation [None]
  - COVID-19 [None]
  - Therapy interrupted [None]
  - Weight decreased [None]
  - Fatigue [None]
  - Balance disorder [None]
  - Dehydration [None]

NARRATIVE: CASE EVENT DATE: 20201207
